FAERS Safety Report 10431316 (Version 1)
Quarter: 2014Q3

REPORT INFORMATION
  Report Type: Spontaneous
  Country: US (occurrence: None)
  Receive Date: 20140815
  Receipt Date: 20140815
  Transmission Date: 20150326
  Serious: Yes (Hospitalization)
  Sender: FDA-Public Use
  Company Number: US-2014-10892

PATIENT
  Sex: Male

DRUGS (2)
  1. ZYPREXA (OLANSAPINE) [Concomitant]
  2. ABILIFY MAINTENA [Suspect]
     Active Substance: ARIPIPRAZOLE
     Indication: SCHIZOPHRENIA
     Route: 030

REACTIONS (1)
  - Aggression [None]
